FAERS Safety Report 19013381 (Version 3)
Quarter: 2021Q3

REPORT INFORMATION
  Report Type: Report from Study
  Country: GB (occurrence: GB)
  Receive Date: 20210316
  Receipt Date: 20210729
  Transmission Date: 20211014
  Serious: Yes (Hospitalization)
  Sender: FDA-Public Use
  Company Number: GB-KYOWAKIRIN-2021BKK003688

PATIENT

DRUGS (2)
  1. BUROSUMAB [Suspect]
     Active Substance: BUROSUMAB
     Dosage: UNK UNK, 1X/2 WEEKS
     Route: 065
  2. BUROSUMAB [Suspect]
     Active Substance: BUROSUMAB
     Indication: PRODUCT USED FOR UNKNOWN INDICATION
     Dosage: 25 MG, 1X/2 WEEKS
     Route: 065
     Dates: start: 20210226

REACTIONS (7)
  - Swelling face [Unknown]
  - Eye swelling [Unknown]
  - Abnormal behaviour [Unknown]
  - Tooth abscess [Unknown]
  - Incorrect dose administered [Not Recovered/Not Resolved]
  - Infection [Unknown]
  - Lethargy [Unknown]

NARRATIVE: CASE EVENT DATE: 20210226
